FAERS Safety Report 7197674-1 (Version None)
Quarter: 2010Q4

REPORT INFORMATION
  Report Type: 
  Country: None (occurrence: None)
  Receive Date: 20101213
  Receipt Date: 20101130
  Transmission Date: 20110411
  Serious: Yes (Other)
  Sender: FDA-Public Use
  Company Number: US-1182708

PATIENT
  Age: 55 Year
  Sex: Female
  Weight: 81.1939 kg

DRUGS (2)
  1. PHENYLEPHRINE HCL [Suspect]
     Indication: MYDRIASIS
     Dosage: (1 GTT OU OPHTHALMIC)
     Route: 047
     Dates: start: 20080508, end: 20080508
  2. MYDRIACYL [Suspect]
     Dosage: (OPHTHALMIC)
     Route: 047
     Dates: start: 20080508, end: 20080508

REACTIONS (4)
  - BLOOD PRESSURE INCREASED [None]
  - DRUG EFFECT PROLONGED [None]
  - EYE DISORDER [None]
  - TRANSIENT ISCHAEMIC ATTACK [None]
